FAERS Safety Report 8381765-3 (Version None)
Quarter: 2012Q2

REPORT INFORMATION
  Report Type: 
  Country: None (occurrence: None)
  Receive Date: 20120524
  Receipt Date: 20120517
  Transmission Date: 20120825
  Serious: Yes (Hospitalization)
  Sender: FDA-Public Use
  Company Number: US-BAYER-2012-009255

PATIENT
  Age: 17 Year
  Sex: Female
  Weight: 82.54 kg

DRUGS (12)
  1. ACETAMINOPHEN [Concomitant]
     Indication: PAIN
     Dosage: 650 MG, PRN
     Route: 048
  2. ULTRAM [Concomitant]
  3. PROBIOTICS [Concomitant]
     Dosage: UNK
     Dates: start: 20110701
  4. XOPENEX [Concomitant]
     Indication: ASTHMA
     Route: 055
  5. CIPROFLOXACIN [Concomitant]
     Dosage: UNK
     Dates: start: 20110621
  6. DEXAMETHASONE [Concomitant]
     Dosage: 0.5 MG, UNK
     Dates: start: 20110614
  7. IBUPROFEN [Concomitant]
     Indication: MIGRAINE
     Dosage: 200 MG, UNK
     Route: 048
  8. LLYSINE [Concomitant]
     Dosage: UNK
     Dates: start: 20110701
  9. IBUPROFEN (ADVIL) [Concomitant]
     Route: 048
  10. VITAMIN B COMPLEX CAP [Concomitant]
     Dosage: UNK
     Dates: start: 20110701
  11. DROSPIRENONE AND ETHINYL ESTRADIOL [Suspect]
     Indication: MENSTRUATION IRREGULAR
     Dosage: UNK
     Route: 048
     Dates: start: 20110101, end: 20110701
  12. MOTRIN [Concomitant]

REACTIONS (10)
  - PAIN [None]
  - PULMONARY EMBOLISM [None]
  - INJURY [None]
  - DEEP VEIN THROMBOSIS [None]
  - ATELECTASIS [None]
  - LUNG CONSOLIDATION [None]
  - EMOTIONAL DISTRESS [None]
  - GENERAL PHYSICAL HEALTH DETERIORATION [None]
  - ANXIETY [None]
  - PLEURAL EFFUSION [None]
